FAERS Safety Report 6431692-3 (Version None)
Quarter: 2009Q4

REPORT INFORMATION
  Report Type: 
  Country: None (occurrence: None)
  Receive Date: 20091103
  Receipt Date: 20091021
  Transmission Date: 20100525
  Serious: Yes (Disabling)
  Sender: FDA-Public Use
  Company Number: OSCN-NO-0908S-0400

PATIENT
  Age: 38 Year
  Sex: Female
  Weight: 65 kg

DRUGS (12)
  1. OMNISCAN [Suspect]
     Indication: PAIN IN EXTREMITY
     Dosage: SINGLE DOSE, I.V.
     Route: 042
     Dates: start: 20060407, end: 20060407
  2. OMNISCAN [Suspect]
     Indication: PARAESTHESIA
     Dosage: SINGLE DOSE, I.V.
     Route: 042
     Dates: start: 20060407, end: 20060407
  3. ERYTHROPOIETIN (NEORECORMON) [Concomitant]
  4. PHENOXYMETHYLPENICILLIN (VEPICOMBIN) [Concomitant]
  5. ENALAPRIL (CORODIL) [Concomitant]
  6. IBUPROFEN (IPREN) [Concomitant]
  7. TRAMADOL (MANDOLGIN) [Concomitant]
  8. BUMETANIDE [Concomitant]
  9. SIMVASTATIN [Concomitant]
  10. NEXIUM [Concomitant]
  11. ASCORBIC ACID (C-VITAMIN) [Concomitant]
  12. FOLIC ACID [Concomitant]

REACTIONS (5)
  - BURNING SENSATION [None]
  - GAIT DISTURBANCE [None]
  - MUSCULOSKELETAL STIFFNESS [None]
  - PAIN IN EXTREMITY [None]
  - SKIN FIBROSIS [None]
